FAERS Safety Report 22023620 (Version 2)
Quarter: 2023Q2

REPORT INFORMATION
  Report Type: Spontaneous
  Country: US (occurrence: US)
  Receive Date: 20230223
  Receipt Date: 20230425
  Transmission Date: 20230721
  Serious: No
  Sender: FDA-Public Use
  Company Number: US-Millicent Holdings Ltd.-MILL20230049

PATIENT
  Sex: Female
  Weight: 55.9 kg

DRUGS (3)
  1. INTRAROSA [Suspect]
     Active Substance: PRASTERONE
     Indication: Vulvovaginal dryness
     Dosage: 6.5 MG, UNKNOWN
     Route: 067
  2. INTRAROSA [Suspect]
     Active Substance: PRASTERONE
     Indication: Urinary tract infection
     Dosage: 6.5 MG, UNKNOWN
     Route: 067
     Dates: start: 2018
  3. INTRAROSA [Suspect]
     Active Substance: PRASTERONE
     Indication: Dyspareunia

REACTIONS (6)
  - Off label use [Recovered/Resolved]
  - Inappropriate schedule of product administration [Recovered/Resolved]
  - Product packaging difficult to open [Recovered/Resolved]
  - Product packaging issue [Recovered/Resolved]
  - Product physical issue [Recovered/Resolved]
  - Poor quality product administered [Recovered/Resolved]
